FAERS Safety Report 6288482-4 (Version None)
Quarter: 2009Q3

REPORT INFORMATION
  Report Type: 
  Country: None (occurrence: None)
  Receive Date: 20090729
  Receipt Date: 20090724
  Transmission Date: 20100115
  Serious: Yes (Hospitalization)
  Sender: FDA-Public Use
  Company Number: US-EISAI INC.-E2080-00191-SPO-US

PATIENT
  Age: 8 Year
  Sex: Female

DRUGS (1)
  1. BANZEL [Suspect]
     Route: 048
     Dates: start: 20090201, end: 20090723

REACTIONS (1)
  - PANCREATITIS [None]
